FAERS Safety Report 9956338 (Version 3)
Quarter: 2014Q2

REPORT INFORMATION
  Report Type: Report from Study
  Country: IT (occurrence: IT)
  Receive Date: 20140304
  Receipt Date: 20140403
  Transmission Date: 20141212
  Serious: Yes (Death, Hospitalization, Other)
  Sender: FDA-Public Use
  Company Number: IT-EXELIXIS-XL18414004052

PATIENT
  Age: 69 Year
  Sex: Female
  Weight: 68 kg

DRUGS (4)
  1. XL184 [Suspect]
     Indication: RENAL CELL CARCINOMA
     Dosage: 60 MG, QD
     Route: 048
     Dates: start: 20140128, end: 20140227
  2. PREDNISONE [Concomitant]
  3. OMEPRAZOLE [Concomitant]
  4. RAMIPRIL [Concomitant]

REACTIONS (2)
  - Cerebral haematoma [Not Recovered/Not Resolved]
  - Renal cancer [Fatal]
